FAERS Safety Report 18807729 (Version 1)
Quarter: 2021Q1

REPORT INFORMATION
  Report Type: Spontaneous
  Country: US (occurrence: US)
  Receive Date: 20210129
  Receipt Date: 20210129
  Transmission Date: 20210419
  Serious: Yes (Hospitalization)
  Sender: FDA-Public Use
  Company Number: None

PATIENT
  Age: 87 Year
  Sex: Female
  Weight: 62.6 kg

DRUGS (2)
  1. BAMLANIVIMAB 700MG IN SODIUM CHLORIDE 0.9% [Suspect]
     Active Substance: BAMLANIVIMAB
     Indication: COVID-19
     Dates: start: 20210128, end: 20210128
  2. BAMLANIVIMAB. [Concomitant]
     Active Substance: BAMLANIVIMAB
     Dates: start: 20210128, end: 20210128

REACTIONS (3)
  - Pyrexia [None]
  - Atrial fibrillation [None]
  - Chills [None]

NARRATIVE: CASE EVENT DATE: 20210128
